FAERS Safety Report 9396144 (Version 1)
Quarter: 2013Q3

REPORT INFORMATION
  Report Type: Spontaneous
  Country: DK (occurrence: AU)
  Receive Date: 20130711
  Receipt Date: 20130711
  Transmission Date: 20140515
  Serious: Yes (Hospitalization)
  Sender: FDA-Public Use
  Company Number: AU-FRI-1000046615

PATIENT
  Age: 54 Year
  Sex: Female

DRUGS (4)
  1. ESCITALOPRAM [Suspect]
     Indication: DEPRESSION
     Dosage: 5 MG
  2. CLOZAPINE [Suspect]
     Indication: SCHIZOPHRENIA
     Dosage: 450 MG
     Route: 048
     Dates: start: 20010628
  3. THYROXINE SODIUM [Suspect]
     Dosage: 75 MG
  4. EPILIM [Concomitant]
     Dosage: 500 MG

REACTIONS (2)
  - Electrocardiogram QT prolonged [Unknown]
  - Antipsychotic drug level increased [Unknown]
